FAERS Safety Report 22628845 (Version 10)
Quarter: 2025Q1

REPORT INFORMATION
  Report Type: Report from Study
  Country: US (occurrence: US)
  Receive Date: 20230622
  Receipt Date: 20250331
  Transmission Date: 20250409
  Serious: Yes (Other)
  Sender: TAKEDA
  Company Number: US-TAKEDA-2022TUS031880

PATIENT
  Age: 47 Year
  Sex: Female
  Weight: 74 kg

DRUGS (17)
  1. HUMAN IMMUNOGLOBULIN G [Suspect]
     Active Substance: HUMAN IMMUNOGLOBULIN G
     Indication: Myasthenia gravis
  2. HUMAN IMMUNOGLOBULIN G [Suspect]
     Active Substance: HUMAN IMMUNOGLOBULIN G
  3. HUMAN IMMUNOGLOBULIN G [Suspect]
     Active Substance: HUMAN IMMUNOGLOBULIN G
  4. HUMAN IMMUNOGLOBULIN G [Suspect]
     Active Substance: HUMAN IMMUNOGLOBULIN G
  5. DIPHENHYDRAMINE [Concomitant]
     Active Substance: DIPHENHYDRAMINE
  6. EPINEPHRINE [Concomitant]
     Active Substance: EPINEPHRINE
  7. SODIUM CHLORIDE [Concomitant]
     Active Substance: SODIUM CHLORIDE
  8. ACETAMINOPHEN [Concomitant]
     Active Substance: ACETAMINOPHEN
  9. LORATADINE [Concomitant]
     Active Substance: LORATADINE
  10. MESTINON [Concomitant]
     Active Substance: PYRIDOSTIGMINE BROMIDE
  11. Celex [Concomitant]
  12. HEPARIN [Concomitant]
     Active Substance: HEPARIN SODIUM
  13. OMEPRAZOLE [Concomitant]
     Active Substance: OMEPRAZOLE
  14. Lmx [Concomitant]
  15. CELLCEPT [Concomitant]
     Active Substance: MYCOPHENOLATE MOFETIL
  16. CELEXA [Concomitant]
     Active Substance: CITALOPRAM HYDROBROMIDE
  17. DIPHENHYDRAMINE HYDROCHLORIDE [Concomitant]
     Active Substance: DIPHENHYDRAMINE HYDROCHLORIDE

REACTIONS (30)
  - Pneumonia [Unknown]
  - Menstruation irregular [Unknown]
  - Heavy menstrual bleeding [Unknown]
  - Food allergy [Unknown]
  - Brain fog [Unknown]
  - Application site laceration [Unknown]
  - Seasonal allergy [Unknown]
  - Infection [Unknown]
  - Premenstrual pain [Recovering/Resolving]
  - Exercise tolerance decreased [Unknown]
  - Off label use [Unknown]
  - Tongue disorder [Unknown]
  - Withdrawal syndrome [Unknown]
  - Insurance issue [Unknown]
  - Product dose omission issue [Unknown]
  - Multiple allergies [Unknown]
  - Illness [Unknown]
  - Product use issue [Unknown]
  - Inappropriate schedule of product administration [Unknown]
  - Sinus disorder [Unknown]
  - Musculoskeletal stiffness [Unknown]
  - Feeling abnormal [Unknown]
  - Influenza [Unknown]
  - Somnolence [Unknown]
  - Vision blurred [Unknown]
  - Muscular weakness [Unknown]
  - Asthenia [Unknown]
  - Cough [Unknown]
  - Fatigue [Unknown]
  - Dyspnoea [Unknown]

NARRATIVE: CASE EVENT DATE: 20211014
